FAERS Safety Report 9152284 (Version 1)
Quarter: 2013Q1

REPORT INFORMATION
  Report Type: Spontaneous
  Country: FR (occurrence: FR)
  Receive Date: 20130308
  Receipt Date: 20130308
  Transmission Date: 20140127
  Serious: Yes (Other)
  Sender: FDA-Public Use
  Company Number: FR-PFIZER INC-2013074157

PATIENT
  Age: 49 Year
  Sex: Male

DRUGS (2)
  1. EFFEXOR [Suspect]
     Indication: DEPRESSION
     Dosage: UNK
     Route: 048
     Dates: start: 2011
  2. HUMIRA [Suspect]
     Indication: PSORIASIS
     Dosage: UNK
     Route: 058
     Dates: start: 20111010, end: 20130123

REACTIONS (9)
  - Condition aggravated [Unknown]
  - Depression [Unknown]
  - Affective disorder [Unknown]
  - Anxiety [Unknown]
  - Psychiatric symptom [Unknown]
  - Stress [Unknown]
  - Asthenia [Unknown]
  - Insomnia [Unknown]
  - Musculoskeletal chest pain [Unknown]
